FAERS Safety Report 4808438-5 (Version None)
Quarter: 2005Q4

REPORT INFORMATION
  Report Type: 
  Country: None (occurrence: None)
  Receive Date: 20051021
  Receipt Date: 20041018
  Transmission Date: 20060501
  Serious: Yes (Other)
  Sender: FDA-Public Use
  Company Number: AU_041008144

PATIENT
  Age: 51 Year
  Sex: Male
  Weight: 93 kg

DRUGS (3)
  1. OLANZAPINE [Suspect]
     Indication: PSYCHOTIC DISORDER
     Dosage: PSYCHOSIS
     Dates: start: 20030701
  2. QUETIAPINE FUMARATE [Concomitant]
  3. BENZOFIBRATE [Concomitant]

REACTIONS (4)
  - LEUKOPENIA [None]
  - LYMPHOPENIA [None]
  - MONOCYTE PERCENTAGE INCREASED [None]
  - NEUTROPHIL COUNT DECREASED [None]
